FAERS Safety Report 4717637-2 (Version None)
Quarter: 2005Q3

REPORT INFORMATION
  Report Type: 
  Country: None (occurrence: None)
  Receive Date: 20050713
  Receipt Date: 20050513
  Transmission Date: 20060218
  Serious: Yes (Other)
  Sender: FDA-Public Use
  Company Number: 404837

PATIENT
  Age: 52 Year
  Sex: Male
  Weight: 73.5 kg

DRUGS (5)
  1. FUZEON [Suspect]
     Indication: ACQUIRED IMMUNODEFICIENCY SYNDROME
     Dosage: 2 PER DAY SUBCUTANEOUS
     Route: 058
     Dates: start: 20041024, end: 20050209
  2. COMBIVIR [Concomitant]
  3. VIDEX EC [Concomitant]
  4. KALETRA [Concomitant]
  5. ATENOLOL [Concomitant]

REACTIONS (3)
  - BURNING SENSATION [None]
  - MUSCLE SPASMS [None]
  - PAIN IN EXTREMITY [None]
